FAERS Safety Report 13452033 (Version 1)
Quarter: 2017Q2

REPORT INFORMATION
  Report Type: Spontaneous
  Country: US (occurrence: US)
  Receive Date: 20170418
  Receipt Date: 20170418
  Transmission Date: 20170830
  Serious: Yes (Other)
  Sender: FDA-Public Use
  Company Number: US-JNJFOC-20170416523

PATIENT
  Age: 54 Year
  Sex: Male

DRUGS (3)
  1. INVOKANA [Suspect]
     Active Substance: CANAGLIFLOZIN
     Indication: TYPE 2 DIABETES MELLITUS
     Route: 048
     Dates: start: 20150122, end: 201511
  2. METFORMIN HCL [Suspect]
     Active Substance: METFORMIN HYDROCHLORIDE
     Indication: GASTRINOMA
     Route: 048
     Dates: start: 20150122
  3. GLIPIZIDE. [Suspect]
     Active Substance: GLIPIZIDE
     Indication: GASTRINOMA
     Route: 048

REACTIONS (2)
  - Sepsis [Unknown]
  - Renal disorder [Recovering/Resolving]

NARRATIVE: CASE EVENT DATE: 201510
